FAERS Safety Report 4655340-8 (Version None)
Quarter: 2005Q2

REPORT INFORMATION
  Report Type: 
  Country: None (occurrence: None)
  Receive Date: 20050331
  Receipt Date: 20040830
  Transmission Date: 20051028
  Serious: No
  Sender: FDA-Public Use
  Company Number: US090007

PATIENT
  Age: 47 Year
  Sex: Female
  Weight: 63.6 kg

DRUGS (5)
  1. NEULASTA [Suspect]
     Indication: CHEMOTHERAPY
     Dosage: 6 MG, 1 IN 2 WEEKS, SC
     Route: 058
     Dates: start: 20040719, end: 20040902
  2. DOCETAXEL [Concomitant]
  3. ONDANSETRON HYDROCHLORIDE [Concomitant]
  4. DEXAMETHASONE [Concomitant]
  5. ARANESP [Concomitant]

REACTIONS (1)
  - HEPATIC ENZYME INCREASED [None]
